FAERS Safety Report 15490190 (Version 14)
Quarter: 2021Q3

REPORT INFORMATION
  Report Type: Spontaneous
  Country: US (occurrence: US)
  Receive Date: 20181011
  Receipt Date: 20210917
  Transmission Date: 20211014
  Serious: No
  Sender: FDA-Public Use
  Company Number: US-PFIZER INC-2018277896

PATIENT
  Age: 60 Year
  Sex: Female
  Weight: 50 kg

DRUGS (17)
  1. KLONOPIN [Concomitant]
     Active Substance: CLONAZEPAM
     Indication: SLEEP TERROR
     Dosage: 2 MG, 1X/DAY (AT BEDTIME)
     Dates: start: 1992
  2. SUPER COLLAGEN [Concomitant]
     Indication: SKIN DISORDER
     Dosage: 3 DF, DAILY
  3. SUPER COLLAGEN [Concomitant]
     Indication: NAIL DISORDER
  4. VITAMIN E [Concomitant]
     Active Substance: .ALPHA.-TOCOPHEROL
     Dosage: UNK
     Dates: start: 2016
  5. LEVOXYL [Concomitant]
     Active Substance: LEVOTHYROXINE SODIUM
     Indication: DEPRESSION
     Dosage: UNK
  6. KLONOPIN [Concomitant]
     Active Substance: CLONAZEPAM
     Indication: POST-TRAUMATIC STRESS DISORDER
  7. VITAMIN D3 [Concomitant]
     Active Substance: CHOLECALCIFEROL
     Dosage: UNK
     Dates: start: 2015
  8. LEVOXYL [Concomitant]
     Active Substance: LEVOTHYROXINE SODIUM
     Indication: THYROID DISORDER
  9. PREMARIN [Suspect]
     Active Substance: ESTROGENS, CONJUGATED
     Dosage: 0.625 MG, ONCE A DAY
     Route: 048
     Dates: start: 2018
  10. REGLAN [Concomitant]
     Active Substance: METOCLOPRAMIDE HYDROCHLORIDE
     Indication: ABDOMINAL PAIN UPPER
     Dosage: 10 MG, 3X/DAY
  11. SUPER COLLAGEN [Concomitant]
     Indication: ARTHROPATHY
  12. PREMARIN [Suspect]
     Active Substance: ESTROGENS, CONJUGATED
     Indication: MENOPAUSE
     Dosage: 0.625 MG, ONCE A DAY
     Route: 048
     Dates: start: 2002
  13. PREMARIN [Suspect]
     Active Substance: ESTROGENS, CONJUGATED
     Dosage: 0.625 MG, 1X/DAY, [EVERY MORNING]
     Route: 048
  14. LEVOXYL [Concomitant]
     Active Substance: LEVOTHYROXINE SODIUM
     Indication: GASTROINTESTINAL DISORDER
  15. SUPER COLLAGEN [Concomitant]
     Indication: HAIR DISORDER
  16. L?LYSINE [LYSINE] [Concomitant]
     Dosage: UNK
     Dates: start: 2015
  17. EFFEXOR [Concomitant]
     Active Substance: VENLAFAXINE HYDROCHLORIDE
     Dosage: 150 (UNITS UNKNOWN), 2X/DAY

REACTIONS (9)
  - Drug ineffective [Unknown]
  - Malaise [Unknown]
  - Panic attack [Unknown]
  - Tachyphrenia [Recovered/Resolved]
  - Affect lability [Unknown]
  - Feeling abnormal [Unknown]
  - Blood testosterone decreased [Unknown]
  - Anxiety [Unknown]
  - SARS-CoV-2 test positive [Recovered/Resolved]

NARRATIVE: CASE EVENT DATE: 2018
